FAERS Safety Report 24743968 (Version 1)
Quarter: 2024Q4

REPORT INFORMATION
  Report Type: Report from Study
  Country: US (occurrence: US)
  Receive Date: 20241217
  Receipt Date: 20241217
  Transmission Date: 20250115
  Serious: Yes (Other)
  Sender: ABBVIE
  Company Number: US-ABBVIE-6044535

PATIENT
  Age: 51 Year
  Sex: Female

DRUGS (2)
  1. HUMIRA [Suspect]
     Active Substance: ADALIMUMAB
     Indication: Ankylosing spondylitis
     Route: 058
     Dates: start: 201705
  2. HUMIRA [Suspect]
     Active Substance: ADALIMUMAB
     Indication: Crohn^s disease

REACTIONS (11)
  - Pulmonary haemorrhage [Unknown]
  - Sciatica [Not Recovered/Not Resolved]
  - Vasculitis [Recovered/Resolved]
  - Condition aggravated [Recovering/Resolving]
  - Condition aggravated [Recovered/Resolved]
  - Inflammation [Recovering/Resolving]
  - Inflammation [Recovered/Resolved]
  - Blood urine present [Unknown]
  - Renal haemorrhage [Unknown]
  - Condition aggravated [Recovered/Resolved]
  - Rash [Unknown]

NARRATIVE: CASE EVENT DATE: 20220101
